FAERS Safety Report 6941953-7 (Version None)
Quarter: 2010Q3

REPORT INFORMATION
  Report Type: 
  Country: None (occurrence: None)
  Receive Date: 20100817
  Receipt Date: 20100802
  Transmission Date: 20110219
  Serious: Yes (Life-Threatening, Hospitalization, Other)
  Sender: FDA-Public Use
  Company Number: 2009AC000276

PATIENT
  Age: 49 Year
  Sex: Male

DRUGS (60)
  1. DIGOXIN [Suspect]
     Dosage: 0.25 MG; QOD; PO
     Route: 048
     Dates: start: 20000531, end: 20001201
  2. DIGOXIN [Suspect]
     Dosage: 0.25 MG; QD; PO
     Dates: end: 20030614
  3. DIGOXIN [Suspect]
     Dosage: 0.2 MG; QD; PO
     Route: 048
     Dates: start: 19990607, end: 19990101
  4. DIGOXIN [Suspect]
     Dosage: 0.25 MG; PO
     Route: 048
     Dates: start: 20030613, end: 20040614
  5. DIGOXIN [Suspect]
     Dosage: 0.125 MG; PO
     Route: 048
     Dates: start: 20020221, end: 20041001
  6. DIGOXIN [Suspect]
     Dosage: 0.25 MG; QD; PO
     Route: 048
     Dates: start: 19990101
  7. DIGOXIN [Suspect]
     Dosage: 0.375 MG; QOD; PO
     Route: 048
     Dates: start: 20000531, end: 20001201
  8. DIGOXIN [Suspect]
     Dosage: 0.125 MG; QD; PO
     Route: 048
     Dates: start: 20001201
  9. DIGOXIN [Suspect]
     Dosage: 0.5 MG; 1X; IV
     Route: 042
     Dates: start: 19990924, end: 19990924
  10. DIGOXIN [Suspect]
     Dosage: 0.4 MG; QD; PO
     Dates: start: 19990925
  11. LASIX [Concomitant]
  12. PLAVIX [Concomitant]
  13. ALTACE [Concomitant]
  14. SYNTHROID [Concomitant]
  15. METOPROLOL [Concomitant]
  16. PROTONIX [Concomitant]
  17. RISPERDAL [Concomitant]
  18. METOLAZONE [Concomitant]
  19. CAPTOPRIL [Concomitant]
  20. AMIODARONE [Concomitant]
  21. LISINOPRIL [Concomitant]
  22. SPIRONOLACTONE [Concomitant]
  23. KEFLEX [Concomitant]
  24. POTASSIUM [Concomitant]
  25. DILTIAZEM [Concomitant]
  26. LEVAQUIN [Concomitant]
  27. ACETAMINOPHEN [Concomitant]
  28. ALBUTEROL SULATE [Concomitant]
  29. ENVIRO-STRESS [Concomitant]
  30. IPRATROPIUM BROMIDE [Concomitant]
  31. ISORDIL [Concomitant]
  32. NITROGLYCERIN [Concomitant]
  33. SIMVASTATIN [Concomitant]
  34. WARFARIN SODIUM [Concomitant]
  35. HEPARIN [Concomitant]
  36. TRIAMCINOLONE [Concomitant]
  37. PREDNISONE [Concomitant]
  38. INSULIN [Concomitant]
  39. ALUMINUM HYDROXIDE [Concomitant]
  40. MAGNESIUM HYDROXIDE TAB [Concomitant]
  41. ISOSORBIDE DINITRATE [Concomitant]
  42. ASPIRIN [Concomitant]
  43. ACETAMINOPHEN [Concomitant]
  44. COREG [Concomitant]
  45. CLONAZEPAM [Concomitant]
  46. RISPERIDONE [Concomitant]
  47. CITALOPRAM HYDROBROMIDE [Concomitant]
  48. COMBIVENT [Concomitant]
  49. OMEPRAZOLE [Concomitant]
  50. CLOPIDOGREL BISULFATE [Concomitant]
  51. FLUTICASONE INHALER [Concomitant]
  52. FORMOTEROL FUMARATE INHALER [Concomitant]
  53. HYDROCHLOROTHIAZIDE [Concomitant]
  54. ATENOLOL [Concomitant]
  55. ATROVENT [Concomitant]
  56. LIDOCAINE [Concomitant]
  57. LOPRESSOR [Concomitant]
  58. LOVENOX [Concomitant]
  59. LORATADINE [Concomitant]
  60. ANTIVERT [Concomitant]

REACTIONS (35)
  - ANGINA UNSTABLE [None]
  - ATRIAL FIBRILLATION [None]
  - ATRIAL FLUTTER [None]
  - CARDIAC ARREST [None]
  - CARDIAC FAILURE CONGESTIVE [None]
  - CELLULITIS [None]
  - CONDUCTION DISORDER [None]
  - CORONARY ARTERY OCCLUSION [None]
  - ECONOMIC PROBLEM [None]
  - HYPERGLYCAEMIA [None]
  - HYPOTENSION [None]
  - IATROGENIC INJURY [None]
  - INTERNATIONAL NORMALISED RATIO DECREASED [None]
  - ISCHAEMIC CARDIOMYOPATHY [None]
  - LEUKOCYTOSIS [None]
  - LOWER RESPIRATORY TRACT INFECTION [None]
  - MITRAL VALVE INCOMPETENCE [None]
  - MULTIPLE INJURIES [None]
  - MYOCARDIAL INFARCTION [None]
  - NODAL ARRHYTHMIA [None]
  - OTITIS MEDIA [None]
  - PAIN IN EXTREMITY [None]
  - RENAL CYST [None]
  - RENAL FAILURE [None]
  - RIB FRACTURE [None]
  - SENSATION OF HEAVINESS [None]
  - SINUS TACHYCARDIA [None]
  - SKIN CANCER [None]
  - SLEEP APNOEA SYNDROME [None]
  - TREMOR [None]
  - VENTRICULAR EXTRASYSTOLES [None]
  - VENTRICULAR FIBRILLATION [None]
  - VENTRICULAR TACHYCARDIA [None]
  - VERTIGO [None]
  - WEIGHT DECREASED [None]
